FAERS Safety Report 20373639 (Version 1)
Quarter: 2022Q1

REPORT INFORMATION
  Report Type: Other
  Country: US (occurrence: None)
  Receive Date: 20220125
  Receipt Date: 20220125
  Transmission Date: 20220423
  Serious: Yes (Hospitalization)
  Sender: FDA-Public Use
  Company Number: US-ROCHE-3001548

PATIENT
  Age: 73 Year
  Sex: Female

DRUGS (2)
  1. OCREVUS [Suspect]
     Active Substance: OCRELIZUMAB
     Indication: Primary progressive multiple sclerosis
     Dosage: LAST DATE OF TREATMENT: 05/DEC/2019, DATE OF NEXT TREATMENT: 9/JUN/2020, DATE OF TREATMENT: 26/JUN/2
     Route: 042
     Dates: start: 20170726
  2. OCREVUS [Suspect]
     Active Substance: OCRELIZUMAB
     Indication: Primary progressive multiple sclerosis

REACTIONS (3)
  - COVID-19 [Recovering/Resolving]
  - Thrombosis [Recovered/Resolved]
  - Dysphonia [Not Recovered/Not Resolved]

NARRATIVE: CASE EVENT DATE: 20210910
